FAERS Safety Report 6990070-9 (Version None)
Quarter: 2010Q3

REPORT INFORMATION
  Report Type: 
  Country: None (occurrence: None)
  Receive Date: 20100916
  Receipt Date: 20100503
  Transmission Date: 20110219
  Serious: Yes (Other)
  Sender: FDA-Public Use
  Company Number: US-PFIZER INC-2010040735

PATIENT
  Sex: Male
  Weight: 83.9 kg

DRUGS (5)
  1. LYRICA [Suspect]
     Dosage: UNK
     Route: 048
  2. TRICOR [Concomitant]
     Dosage: UNK
  3. ZETIA [Concomitant]
     Dosage: UNK
  4. LORTAB [Concomitant]
     Dosage: UNK
  5. PREVACID [Concomitant]
     Dosage: UNK

REACTIONS (3)
  - DRY MOUTH [None]
  - JOINT SWELLING [None]
  - OEDEMA PERIPHERAL [None]
